FAERS Safety Report 9196906 (Version 2)
Quarter: 2013Q4

REPORT INFORMATION
  Report Type: Spontaneous
  Country: US (occurrence: None)
  Receive Date: 20120703
  Receipt Date: 20131226
  Transmission Date: 20140711
  Serious: Yes (Other)
  Sender: FDA-Public Use
  Company Number: PHEH2012US007429

PATIENT
  Sex: Female

DRUGS (1)
  1. GILENYA [Suspect]

REACTIONS (4)
  - Fatigue [None]
  - Pain [None]
  - Alopecia [None]
  - Maternal exposure during pregnancy [None]
